FAERS Safety Report 9186606 (Version 1)
Quarter: 2013Q1

REPORT INFORMATION
  Report Type: Spontaneous
  Country: IT (occurrence: IT)
  Receive Date: 20130325
  Receipt Date: 20130325
  Transmission Date: 20140127
  Serious: Yes (Other)
  Sender: FDA-Public Use
  Company Number: IT-TEVA-392244ISR

PATIENT
  Age: 74 Year
  Sex: Male

DRUGS (6)
  1. CARVEDILOL [Suspect]
     Indication: CARDIAC FAILURE
     Dosage: 50 MILLIGRAM DAILY;
     Route: 048
     Dates: start: 201211, end: 20130108
  2. TRIATEC [Concomitant]
     Indication: HYPERTENSION
  3. LASIX [Concomitant]
     Indication: HYPERTENSION
  4. ALDACTONE [Concomitant]
     Indication: HYPERTENSION
  5. SIVASTIN [Concomitant]
     Indication: HYPERCHOLESTEROLAEMIA
  6. COUMADIN [Concomitant]

REACTIONS (1)
  - Bronchostenosis [Recovering/Resolving]
